FAERS Safety Report 24105209 (Version 1)
Quarter: 2024Q3

REPORT INFORMATION
  Report Type: Other
  Country: SI (occurrence: SI)
  Receive Date: 20240717
  Receipt Date: 20240717
  Transmission Date: 20241017
  Serious: Yes (Other)
  Sender: MENARINI
  Company Number: SI-MEN-2024-105268

PATIENT
  Sex: Male

DRUGS (1)
  1. RANOLAZINE [Suspect]
     Active Substance: RANOLAZINE
     Indication: Angina pectoris
     Dosage: 750 MG, QD
     Route: 048

REACTIONS (1)
  - Hallucination, visual [Recovered/Resolved]
